FAERS Safety Report 25530417 (Version 2)
Quarter: 2025Q3

REPORT INFORMATION
  Report Type: Spontaneous
  Country: US (occurrence: US)
  Receive Date: 20250708
  Receipt Date: 20250725
  Transmission Date: 20251021
  Serious: No
  Sender: SANOFI AVENTIS
  Company Number: US-SA-2025SA191214

PATIENT
  Age: 77 Year
  Sex: Female
  Weight: 61.23 kg

DRUGS (11)
  1. DUPIXENT [Suspect]
     Active Substance: DUPILUMAB
     Indication: Dermatitis atopic
     Dosage: 300 MG, QOW
     Route: 058
  2. AMLODIPINE BESYLATE [Concomitant]
     Active Substance: AMLODIPINE BESYLATE
  3. NAPROXEN [Concomitant]
     Active Substance: NAPROXEN
  4. MINOXIDIL [Concomitant]
     Active Substance: MINOXIDIL
  5. VTAMA [Concomitant]
     Active Substance: TAPINAROF
  6. IBUPROFEN [Concomitant]
     Active Substance: IBUPROFEN
  7. AZELASTINE HYDROCHLORIDE [Concomitant]
     Active Substance: AZELASTINE HYDROCHLORIDE
  8. BIOTIN [Concomitant]
     Active Substance: BIOTIN
  9. ALLEGRA ALLERGY [Concomitant]
     Active Substance: FEXOFENADINE HYDROCHLORIDE
  10. VITAMINS [Concomitant]
     Active Substance: VITAMINS
  11. METHYLPREDNISOLONE [Concomitant]
     Active Substance: METHYLPREDNISOLONE

REACTIONS (5)
  - Ligament sprain [Unknown]
  - Weight increased [Unknown]
  - Gait disturbance [Recovering/Resolving]
  - Arthropathy [Unknown]
  - Foot fracture [Unknown]

NARRATIVE: CASE EVENT DATE: 20250701
